FAERS Safety Report 24541471 (Version 1)
Quarter: 2024Q4

REPORT INFORMATION
  Report Type: Spontaneous
  Country: TR (occurrence: TR)
  Receive Date: 20241023
  Receipt Date: 20241023
  Transmission Date: 20250114
  Serious: Yes (Hospitalization, Other)
  Sender: NOVO NORDISK
  Company Number: TR-NOVOPROD-1300406

PATIENT
  Age: 58 Year
  Sex: Female
  Weight: 90 kg

DRUGS (2)
  1. RYZODEG 70/30 [Suspect]
     Active Substance: INSULIN ASPART\INSULIN DEGLUDEC
     Indication: Type 2 diabetes mellitus
     Dosage: UNK
  2. DELTACORTRIL [Concomitant]
     Active Substance: PREDNISOLONE
     Indication: Rheumatic disorder
     Dosage: 5 MG, QD IN THE MORNING

REACTIONS (2)
  - Intervertebral disc operation [Unknown]
  - Infection [Unknown]
